FAERS Safety Report 11870157 (Version 1)
Quarter: 2015Q4

REPORT INFORMATION
  Report Type: Spontaneous
  Country: JP (occurrence: JP)
  Receive Date: 20151228
  Receipt Date: 20151228
  Transmission Date: 20160305
  Serious: Yes (Other)
  Sender: FDA-Public Use
  Company Number: JP-TEVA-620090ISR

PATIENT
  Sex: Female

DRUGS (2)
  1. E-FEN BUCCAL [Suspect]
     Active Substance: FENTANYL CITRATE
     Route: 002
     Dates: start: 201511, end: 201511
  2. E-FEN BUCCAL [Suspect]
     Active Substance: FENTANYL CITRATE
     Indication: PRODUCT USED FOR UNKNOWN INDICATION
     Route: 002

REACTIONS (1)
  - Altered state of consciousness [Recovered/Resolved]

NARRATIVE: CASE EVENT DATE: 201511
